FAERS Safety Report 8227733-3 (Version None)
Quarter: 2012Q1

REPORT INFORMATION
  Report Type: 
  Country: None (occurrence: None)
  Receive Date: 20120322
  Receipt Date: 20120316
  Transmission Date: 20120608
  Serious: Yes (Hospitalization, Other)
  Sender: FDA-Public Use
  Company Number: US-SANOFI-AVENTIS-2012SA013534

PATIENT
  Age: 57 Year
  Sex: Male

DRUGS (15)
  1. ZOLPIDEM TARTRATE [Suspect]
  2. AMBIEN [Suspect]
     Route: 048
     Dates: start: 20030101, end: 20100101
  3. AMBIEN [Suspect]
     Route: 048
     Dates: start: 20100101, end: 20120101
  4. XANAX [Concomitant]
  5. REMERON [Concomitant]
  6. AMBIEN [Suspect]
     Route: 048
     Dates: start: 20120201, end: 20120201
  7. LUNESTA [Concomitant]
  8. ZOLOFT [Concomitant]
     Dates: start: 19880101
  9. UNIRETIC [Concomitant]
     Indication: HYPERTENSION
     Dates: start: 19940101
  10. TRAZODONE HCL [Concomitant]
  11. VIT C [Concomitant]
     Dates: start: 20030101
  12. AMBIEN CR [Suspect]
     Route: 048
  13. PROTONIX [Concomitant]
     Dates: start: 20030101
  14. VITAMIN B-12 [Concomitant]
     Route: 030
     Dates: start: 20030101
  15. PROVENTIL [Concomitant]
     Indication: ASTHMA
     Dates: start: 19600101

REACTIONS (9)
  - PRODUCT QUALITY ISSUE [None]
  - SOMNAMBULISM [None]
  - PROSTATE CANCER [None]
  - INTENTIONAL OVERDOSE [None]
  - DRUG ABUSE [None]
  - ABNORMAL BEHAVIOUR [None]
  - DRUG INEFFECTIVE [None]
  - ROAD TRAFFIC ACCIDENT [None]
  - SLEEP TALKING [None]
